FAERS Safety Report 21232182 (Version 1)
Quarter: 2022Q3

REPORT INFORMATION
  Report Type: Other
  Country: US (occurrence: None)
  Receive Date: 20220819
  Receipt Date: 20220819
  Transmission Date: 20221026
  Serious: Yes (Other)
  Sender: FDA-Public Use
  Company Number: US-ROCHE-3159510

PATIENT
  Sex: Female

DRUGS (6)
  1. OCREVUS [Suspect]
     Active Substance: OCRELIZUMAB
     Indication: Multiple sclerosis
     Route: 041
  2. BACLOFEN [Concomitant]
     Active Substance: BACLOFEN
  3. CRANBERRY [Concomitant]
     Active Substance: CRANBERRY
  4. DITROPAN XL [Concomitant]
     Active Substance: OXYBUTYNIN CHLORIDE
  5. DALFAMPRIDINE [Concomitant]
     Active Substance: DALFAMPRIDINE
  6. PAROXETINE [Concomitant]
     Active Substance: PAROXETINE

REACTIONS (4)
  - JC polyomavirus test positive [Unknown]
  - Suspected COVID-19 [Unknown]
  - Muscular weakness [Unknown]
  - Fall [Unknown]
